FAERS Safety Report 7424681-3 (Version None)
Quarter: 2011Q2

REPORT INFORMATION
  Report Type: 
  Country: None (occurrence: None)
  Receive Date: 20110419
  Receipt Date: 20110403
  Transmission Date: 20111010
  Serious: Yes (Hospitalization, Other)
  Sender: FDA-Public Use
  Company Number: US-BAYER-200943717NA

PATIENT
  Age: 18 Year
  Sex: Female
  Weight: 82.54 kg

DRUGS (10)
  1. YAZ [Suspect]
     Indication: CONTRACEPTION
     Dosage: UNK UNK, QD
     Route: 048
     Dates: start: 20070501, end: 20080101
  2. CIPROFLOXACIN HCL [Concomitant]
     Dosage: 500 MG, BID
  3. MOTRIN [Concomitant]
  4. FLEXERIL [Concomitant]
     Dosage: UNK
     Dates: start: 20080104
  5. YAZ [Suspect]
     Route: 048
  6. NORCO [Concomitant]
     Dosage: UNK
     Dates: start: 20080104
  7. ATIVAN [Concomitant]
     Dosage: UNK
     Dates: start: 20080104
  8. ASPIRIN [Concomitant]
  9. ADVIL COLD AND SINUS [Concomitant]
  10. REGLAN [Concomitant]
     Dosage: UNK
     Dates: start: 20080104

REACTIONS (4)
  - OSTEOCHONDROSIS [None]
  - CEREBROVASCULAR ACCIDENT [None]
  - SUPERIOR SAGITTAL SINUS THROMBOSIS [None]
  - THROMBOSIS [None]
